FAERS Safety Report 6691369-6 (Version None)
Quarter: 2010Q2

REPORT INFORMATION
  Report Type: 
  Country: None (occurrence: None)
  Receive Date: 20100422
  Receipt Date: 20100412
  Transmission Date: 20101027
  Serious: Yes (Other)
  Sender: FDA-Public Use
  Company Number: US-ASTRAZENECA-2009SE12237

PATIENT
  Sex: Male

DRUGS (3)
  1. SEROQUEL [Suspect]
     Dosage: 200 MG TABLET, HALF TABLET DAILY
     Route: 048
     Dates: start: 20070824, end: 20080213
  2. CITALOPRAM HYDROBROMIDE [Concomitant]
     Indication: DEPRESSION
     Dates: start: 20070824
  3. CLONAZEPAM [Concomitant]
     Indication: CONVULSION
     Dates: start: 20070824

REACTIONS (2)
  - DIABETES MELLITUS [None]
  - NEUROPATHY PERIPHERAL [None]
